FAERS Safety Report 5479799-1 (Version None)
Quarter: 2007Q4

REPORT INFORMATION
  Report Type: 
  Country: None (occurrence: None)
  Receive Date: 20071008
  Receipt Date: 20070927
  Transmission Date: 20080405
  Serious: Yes (Hospitalization, Other)
  Sender: FDA-Public Use
  Company Number: US-SHR-US-2007-028935

PATIENT
  Age: 66 Year
  Sex: Female
  Weight: 38.5 kg

DRUGS (4)
  1. BETASERON [Suspect]
     Indication: SECONDARY PROGRESSIVE MULTIPLE SCLEROSIS
     Route: 058
     Dates: start: 20070221, end: 20070420
  2. BETASERON [Suspect]
     Dosage: 8 MIU, EVERY 2D
     Route: 058
     Dates: start: 20070705, end: 20070924
  3. MORPHINE [Concomitant]
  4. XANAX [Concomitant]

REACTIONS (8)
  - BLOOD PRESSURE IMMEASURABLE [None]
  - CEREBROVASCULAR ACCIDENT [None]
  - COMA [None]
  - DYSPNOEA [None]
  - HYPOTONIA [None]
  - MULTIPLE SCLEROSIS [None]
  - OPEN WOUND [None]
  - WEIGHT DECREASED [None]
